FAERS Safety Report 14162087 (Version 2)
Quarter: 2020Q3

REPORT INFORMATION
  Report Type: Spontaneous
  Country: BR (occurrence: BR)
  Receive Date: 20171106
  Receipt Date: 20200807
  Transmission Date: 20201102
  Serious: Yes (Hospitalization, Other)
  Sender: FDA-Public Use
  Company Number: BR-BIOMARINAP-BR-2017-115968

PATIENT
  Age: 13 Year
  Sex: Female
  Weight: 36 kg

DRUGS (5)
  1. LACTULONA [Concomitant]
     Indication: CONSTIPATION
     Dosage: 10 ML, QD
  2. BUDESONIDE. [Concomitant]
     Active Substance: BUDESONIDE
     Indication: BRONCHOSPASM
     Route: 045
  3. CLENIL [BECLOMETASONE DIPROPIONATE] [Concomitant]
     Indication: BRONCHOSPASM
  4. VIMIZIM [Suspect]
     Active Substance: ELOSULFASE ALFA
     Indication: MUCOPOLYSACCHARIDOSIS IV
     Dosage: UNK, QW
     Route: 042
     Dates: start: 20141112
  5. OXYGEN. [Concomitant]
     Active Substance: OXYGEN
     Indication: PRODUCT USED FOR UNKNOWN INDICATION

REACTIONS (6)
  - Pyrexia [Recovered/Resolved]
  - Heart rate increased [Recovered/Resolved]
  - Oxygen saturation decreased [Recovered/Resolved]
  - Urinary tract infection [Recovered/Resolved]
  - Sepsis [Recovered/Resolved]
  - Hypotension [Recovered/Resolved]

NARRATIVE: CASE EVENT DATE: 20171013
